FAERS Safety Report 16249836 (Version 2)
Quarter: 2019Q2

REPORT INFORMATION
  Report Type: Spontaneous
  Country: US (occurrence: US)
  Receive Date: 20190429
  Receipt Date: 20190515
  Transmission Date: 20190711
  Serious: Yes (Death, Hospitalization, Other)
  Sender: FDA-Public Use
  Company Number: US-ASTRAZENECA-2019SE64052

PATIENT
  Age: 27602 Day
  Sex: Female

DRUGS (7)
  1. CLARITHROMYCIN. [Concomitant]
     Active Substance: CLARITHROMYCIN
     Indication: PNEUMONIA
     Route: 048
     Dates: start: 20190410, end: 20190417
  2. SYMBICORT [Suspect]
     Active Substance: BUDESONIDE\FORMOTEROL FUMARATE DIHYDRATE
     Indication: ASTHMA
     Dosage: 160/4.5 MCG, TWO INHALATIONS TWICE DAILY
     Route: 055
     Dates: start: 20190311
  3. FASENRA [Suspect]
     Active Substance: BENRALIZUMAB
     Indication: ASTHMA
     Dosage: ONE INJECTION EVERY 4 WEEKS FOR THE FIRST THREE DOSES FOLLOWED BY ONE SUBCUTANEOUS INJECTION EVER...
     Route: 058
     Dates: start: 20190208
  4. ALBUTEROL IPRATROPIUM [Concomitant]
     Active Substance: ALBUTEROL\IPRATROPIUM
     Indication: ASTHMA
     Dosage: 1 VIAL, AS REQUIRED
     Route: 055
     Dates: start: 20180716
  5. OXYGEN. [Concomitant]
     Active Substance: OXYGEN
     Dosage: 2.0L CONTINUOUSLY
     Route: 045
  6. SPIRIVA RESPIMAT [Concomitant]
     Active Substance: TIOTROPIUM BROMIDE
     Indication: CHRONIC OBSTRUCTIVE PULMONARY DISEASE
     Route: 055
  7. COMBIVENT RESPIMAT [Concomitant]
     Active Substance: ALBUTEROL SULFATE\IPRATROPIUM BROMIDE
     Indication: ASTHMA
     Dosage: 20-100 MCG INHALATION TWICE DAILY
     Route: 055
     Dates: start: 20170925

REACTIONS (5)
  - Pneumonia fungal [Unknown]
  - Death [Fatal]
  - Breast cancer recurrent [Unknown]
  - Pneumonia pseudomonal [Unknown]
  - Acute respiratory failure [Unknown]

NARRATIVE: CASE EVENT DATE: 20190410
